FAERS Safety Report 7557073-7 (Version None)
Quarter: 2011Q2

REPORT INFORMATION
  Report Type: 
  Country: None (occurrence: None)
  Receive Date: 20110620
  Receipt Date: 20110607
  Transmission Date: 20111010
  Serious: Yes (Death, Life-Threatening, Hospitalization)
  Sender: FDA-Public Use
  Company Number: US-ROCHE-729828

PATIENT
  Sex: Female
  Weight: 47.4 kg

DRUGS (3)
  1. BEVACIZUMAB [Suspect]
     Indication: BREAST CANCER
     Dosage: FREQUENCY: OVER 30 TO 90 MINUTES ON DAY 1 AND DAY 15, LAST DOSE:01 JUL 2010.
     Route: 042
     Dates: start: 20100701, end: 20100701
  2. PACLITAXEL [Suspect]
     Indication: BREAST CANCER
     Dosage: FREQUENCY: OVER 30 MINUTES ON DAYS 1, 8 AND 15, .LAST DOSE PRIOR TO SAE: 08 JULY 2010.
     Route: 042
     Dates: start: 20100701, end: 20100715
  3. PACLITAXEL [Suspect]
     Route: 042
     Dates: start: 20100803

REACTIONS (10)
  - EMBOLISM [None]
  - ACUTE RESPIRATORY DISTRESS SYNDROME [None]
  - HYPOXIA [None]
  - ATRIAL FIBRILLATION [None]
  - CARDIAC FAILURE [None]
  - DEATH [None]
  - PLEURAL EFFUSION [None]
  - DYSPNOEA [None]
  - PNEUMOTHORAX [None]
  - PNEUMONITIS [None]
